FAERS Safety Report 23651539 (Version 1)
Quarter: 2024Q1

REPORT INFORMATION
  Report Type: Spontaneous
  Country: US (occurrence: US)
  Receive Date: 20240320
  Receipt Date: 20240320
  Transmission Date: 20240410
  Serious: No
  Sender: FDA-Public Use
  Company Number: US-TAKEDA-2024TUS025565

PATIENT
  Sex: Male
  Weight: 57 kg

DRUGS (1)
  1. VYVANSE [Suspect]
     Active Substance: LISDEXAMFETAMINE DIMESYLATE
     Indication: Attention deficit hyperactivity disorder
     Dosage: 10 MILLIGRAM
     Route: 065
     Dates: start: 2013

REACTIONS (3)
  - Product availability issue [Unknown]
  - Inappropriate schedule of product administration [Unknown]
  - No adverse event [Unknown]
